FAERS Safety Report 13791274 (Version 1)
Quarter: 2017Q3

REPORT INFORMATION
  Report Type: Spontaneous
  Country: US (occurrence: US)
  Receive Date: 20170725
  Receipt Date: 20170725
  Transmission Date: 20171127
  Serious: Yes (Other)
  Sender: FDA-Public Use
  Company Number: US-GEHC-2017CSU002167

PATIENT
  Age: 41 Year
  Sex: Female
  Weight: 71.66 kg

DRUGS (1)
  1. OMNIPAQUE [Suspect]
     Active Substance: IOHEXOL
     Indication: ABDOMINAL PAIN
     Dosage: 90 ML, SINGLE
     Route: 042
     Dates: start: 20170715, end: 20170715

REACTIONS (4)
  - Urticaria [Recovered/Resolved]
  - Feeling abnormal [Unknown]
  - Swelling face [Not Recovered/Not Resolved]
  - Throat tightness [Unknown]

NARRATIVE: CASE EVENT DATE: 20170715
